FAERS Safety Report 4404461-3 (Version None)
Quarter: 2004Q3

REPORT INFORMATION
  Report Type: 
  Country: None (occurrence: None)
  Receive Date: 20040722
  Receipt Date: 20040429
  Transmission Date: 20050211
  Serious: Yes (Hospitalization)
  Sender: FDA-Public Use
  Company Number: DE-BRISTOL-MYERS SQUIBB COMPANY-12596771

PATIENT
  Age: 75 Year
  Sex: Male
  Weight: 82 kg

DRUGS (2)
  1. PACLITAXEL [Suspect]
     Indication: BLADDER CANCER
     Dosage: THERAPY DATES: 21-APR (353.5 MG), 12-MAY (176.75 MG), MOST RECENT DOSE 02-JUN-04
     Route: 042
     Dates: start: 20040421, end: 20040421
  2. GEMCITABINE [Suspect]
     Indication: BLADDER CANCER
     Dosage: THERAPY DATES: 21-APR (2020 MG), 19-MAY (1000 MG), MOST RECENT DOSE 02-JUN-04
     Route: 042
     Dates: start: 20040421, end: 20040421

REACTIONS (5)
  - CIRCULATORY COLLAPSE [None]
  - NAUSEA [None]
  - PANCYTOPENIA [None]
  - PYREXIA [None]
  - URINARY TRACT INFECTION [None]
